FAERS Safety Report 6044526-6 (Version None)
Quarter: 2009Q1

REPORT INFORMATION
  Report Type: 
  Country: None (occurrence: None)
  Receive Date: 20090120
  Receipt Date: 20090109
  Transmission Date: 20090719
  Serious: No
  Sender: FDA-Public Use
  Company Number: US-BAXTER-2009BH000893

PATIENT
  Age: 0 Day
  Sex: Male
  Weight: 2 kg

DRUGS (4)
  1. HEPARIN SODIUM INJECTION [Suspect]
     Indication: DRUG EXPOSURE DURING PREGNANCY
     Route: 015
  2. UNKNOWN ANESTHETIC OR SEDATIVE [Concomitant]
     Indication: DRUG EXPOSURE DURING PREGNANCY
     Route: 015
     Dates: start: 19960201
  3. VITAMIN TAB [Concomitant]
     Indication: DRUG EXPOSURE DURING PREGNANCY
     Route: 015
  4. IRON [Concomitant]
     Indication: DRUG EXPOSURE DURING PREGNANCY
     Route: 015

REACTIONS (2)
  - CAESAREAN SECTION [None]
  - DRUG EXPOSURE DURING PREGNANCY [None]
